FAERS Safety Report 7203421-7 (Version None)
Quarter: 2010Q4

REPORT INFORMATION
  Report Type: 
  Country: None (occurrence: None)
  Receive Date: 20101220
  Receipt Date: 20101203
  Transmission Date: 20110411
  Serious: Yes (Other)
  Sender: FDA-Public Use
  Company Number: 018680

PATIENT
  Sex: Male
  Weight: 74.5 kg

DRUGS (6)
  1. CERTOLIZUMAB PEGOL [Suspect]
     Indication: CROHN'S DISEASE
     Dosage: SEE IMAGE
     Route: 058
     Dates: start: 20041029, end: 20041123
  2. CERTOLIZUMAB PEGOL [Suspect]
     Indication: CROHN'S DISEASE
     Dosage: SEE IMAGE
     Route: 058
     Dates: start: 20041222, end: 20050414
  3. CERTOLIZUMAB PEGOL [Suspect]
     Indication: CROHN'S DISEASE
     Dosage: SEE IMAGE
     Route: 058
     Dates: start: 20050427, end: 20100910
  4. WELCHOL [Concomitant]
  5. MERCAPTOPURINE [Concomitant]
  6. VITAMIN B-12 [Concomitant]

REACTIONS (1)
  - SQUAMOUS CELL CARCINOMA OF SKIN [None]
